FAERS Safety Report 23029159 (Version 1)
Quarter: 2023Q4

REPORT INFORMATION
  Report Type: Spontaneous
  Country: US (occurrence: US)
  Receive Date: 20231004
  Receipt Date: 20231004
  Transmission Date: 20240110
  Serious: Yes (Hospitalization, Other)
  Sender: FDA-Public Use
  Company Number: US-JNJFOC-20230952560

PATIENT
  Age: 66 Year
  Sex: Male
  Weight: 79.904 kg

DRUGS (2)
  1. OPSUMIT [Suspect]
     Active Substance: MACITENTAN
     Indication: Pulmonary hypertension
     Route: 048
     Dates: start: 202308
  2. JARDIANCE [Suspect]
     Active Substance: EMPAGLIFLOZIN
     Indication: Product used for unknown indication
     Route: 065

REACTIONS (5)
  - Cardiac failure congestive [Unknown]
  - Pulmonary hypertension [Unknown]
  - Asthenia [Unknown]
  - Fluid retention [Unknown]
  - Musculoskeletal disorder [Unknown]
